FAERS Safety Report 14558871 (Version 2)
Quarter: 2018Q2

REPORT INFORMATION
  Report Type: Report from Study
  Country: GB (occurrence: GB)
  Receive Date: 20180221
  Receipt Date: 20180418
  Transmission Date: 20180711
  Serious: Yes (Death, Life-Threatening, Hospitalization)
  Sender: FDA-Public Use
  Company Number: GB-LPDUSPRD-20180172

PATIENT
  Age: 71 Year
  Sex: Male

DRUGS (2)
  1. VENOFER [Suspect]
     Active Substance: IRON SUCROSE
     Dosage: UNKNOWN
     Route: 065
  2. WARFARIN [Concomitant]
     Active Substance: WARFARIN
     Dosage: UNKNOWN
     Route: 065

REACTIONS (6)
  - Ill-defined disorder [Fatal]
  - Urinary retention [Fatal]
  - Gait inability [Fatal]
  - Lower respiratory tract infection [Fatal]
  - Death [Fatal]
  - Fluid retention [Fatal]

NARRATIVE: CASE EVENT DATE: 20180124
